FAERS Safety Report 12825247 (Version 1)
Quarter: 2016Q4

REPORT INFORMATION
  Report Type: Spontaneous
  Country: US (occurrence: US)
  Receive Date: 20161007
  Receipt Date: 20161007
  Transmission Date: 20170207
  Serious: No
  Sender: FDA-Public Use
  Company Number: US-INDIVIOR LIMITED-INDV-086717-2015

PATIENT
  Sex: Female

DRUGS (2)
  1. SUBOXONE [Suspect]
     Active Substance: BUPRENORPHINE HYDROCHLORIDE\NALOXONE HYDROCHLORIDE
     Indication: PRODUCT USED FOR UNKNOWN INDICATION
     Dosage: SPLITTING FILM IN QUARTERS AND TAKING 1MG DOSE
     Route: 065
  2. SUBOXONE [Suspect]
     Active Substance: BUPRENORPHINE HYDROCHLORIDE\NALOXONE HYDROCHLORIDE
     Indication: PRODUCT USED FOR UNKNOWN INDICATION
     Dosage: 4MG/1MG, UNK
     Route: 065

REACTIONS (11)
  - Drug ineffective [Unknown]
  - Drug dispensing error [Recovered/Resolved]
  - Therapeutic response unexpected [Unknown]
  - Apathy [Unknown]
  - Depressed mood [Unknown]
  - Product preparation error [Unknown]
  - Feeling abnormal [Unknown]
  - Intentional underdose [Unknown]
  - Asthenia [Unknown]
  - Fatigue [Unknown]
  - Irritability [Unknown]
